FAERS Safety Report 24606150 (Version 1)
Quarter: 2024Q4

REPORT INFORMATION
  Report Type: Spontaneous
  Country: US (occurrence: US)
  Receive Date: 20241112
  Receipt Date: 20241112
  Transmission Date: 20250114
  Serious: Yes (Hospitalization, Other)
  Sender: NOVO NORDISK
  Company Number: US-NOVOPROD-1313904

PATIENT
  Age: 75 Year
  Sex: Female

DRUGS (1)
  1. NOVOLOG [Suspect]
     Active Substance: INSULIN ASPART
     Indication: Type 2 diabetes mellitus
     Dosage: UNK
     Route: 058
     Dates: start: 2020

REACTIONS (5)
  - Fall [Unknown]
  - Wheelchair user [Unknown]
  - Oxygen therapy [Unknown]
  - Product use complaint [Unknown]
  - Expired product administered [Unknown]

NARRATIVE: CASE EVENT DATE: 20230401
